FAERS Safety Report 20750554 (Version 1)
Quarter: 2022Q2

REPORT INFORMATION
  Report Type: Spontaneous
  Country: FR (occurrence: FR)
  Receive Date: 20220426
  Receipt Date: 20220426
  Transmission Date: 20220721
  Serious: Yes (Hospitalization)
  Sender: FDA-Public Use
  Company Number: FR-BoehringerIngelheim-2022-BI-163989

PATIENT
  Age: 59 Year
  Sex: Male

DRUGS (6)
  1. TRULICITY [Suspect]
     Active Substance: DULAGLUTIDE
     Indication: Type 2 diabetes mellitus
     Dosage: 3 MG, EVERY HOUR
     Route: 058
     Dates: start: 20220201
  2. TRULICITY [Suspect]
     Active Substance: DULAGLUTIDE
     Dosage: 1.5 MG, DAILY
     Route: 058
  3. TOUJEO [Suspect]
     Active Substance: INSULIN GLARGINE
     Indication: Type 2 diabetes mellitus
     Dosage: 42 INTERNATIONAL UNIT, DAILY
     Route: 065
     Dates: start: 20220201
  4. TOUJEO [Suspect]
     Active Substance: INSULIN GLARGINE
     Dosage: 22 INTERNATIONAL UNIT, DAILY
     Route: 065
  5. GLUCOPHAGE [Suspect]
     Active Substance: METFORMIN HYDROCHLORIDE
     Indication: Type 2 diabetes mellitus
     Dosage: 1000 MG, DAILY
     Route: 065
  6. JARDIANCE [Suspect]
     Active Substance: EMPAGLIFLOZIN
     Indication: Type 2 diabetes mellitus
     Dosage: 10 MG, DAILY
     Route: 065

REACTIONS (4)
  - Glycosylated haemoglobin increased [Unknown]
  - Vision blurred [Unknown]
  - Prescribed overdose [Unknown]
  - Inappropriate schedule of product administration [Unknown]

NARRATIVE: CASE EVENT DATE: 20220401
